FAERS Safety Report 22020630 (Version 1)
Quarter: 2023Q1

REPORT INFORMATION
  Report Type: Spontaneous
  Country: US (occurrence: US)
  Receive Date: 20230222
  Receipt Date: 20230222
  Transmission Date: 20230417
  Serious: Yes (Life-Threatening, Hospitalization)
  Sender: FDA-Public Use
  Company Number: US-MYLANLABS-2023M1019323

PATIENT
  Age: 35 Year
  Sex: Male

DRUGS (6)
  1. HALOPERIDOL [Interacting]
     Active Substance: HALOPERIDOL
     Indication: Schizophrenia
     Dosage: 200 MILLIGRAM, Q3W
     Route: 030
  2. HALOPERIDOL [Interacting]
     Active Substance: HALOPERIDOL
     Indication: Bipolar disorder
  3. OLANZAPINE [Interacting]
     Active Substance: OLANZAPINE
     Indication: Schizophrenia
     Dosage: 20 MILLIGRAM, HS
     Route: 065
  4. OLANZAPINE [Interacting]
     Active Substance: OLANZAPINE
     Indication: Bipolar disorder
  5. HALOPERIDOL [Suspect]
     Active Substance: HALOPERIDOL
     Indication: Schizophrenia
     Dosage: 5 MILLIGRAM, TID
     Route: 048
  6. HALOPERIDOL [Suspect]
     Active Substance: HALOPERIDOL
     Indication: Bipolar disorder

REACTIONS (2)
  - Neuroleptic malignant syndrome [Recovered/Resolved]
  - Drug interaction [Recovered/Resolved]
